FAERS Safety Report 10384253 (Version 2)
Quarter: 2014Q3

REPORT INFORMATION
  Report Type: Spontaneous
  Country: US (occurrence: None)
  Receive Date: 20140812
  Receipt Date: 20140819
  Transmission Date: 20150326
  Serious: Yes (Hospitalization)
  Sender: FDA-Public Use
  Company Number: 2014-US-009640

PATIENT
  Age: 55 Year
  Sex: Female

DRUGS (2)
  1. XYREM [Suspect]
     Active Substance: SODIUM OXYBATE
     Indication: INSOMNIA
     Route: 048
     Dates: start: 201303, end: 2013
  2. PRIMIDONE. [Suspect]
     Active Substance: PRIMIDONE
     Indication: INSOMNIA
     Dates: start: 20140728

REACTIONS (8)
  - Disorientation [None]
  - Delusion [None]
  - Delirium [None]
  - Somnolence [None]
  - Hypersomnia [None]
  - Incoherent [None]
  - Adverse drug reaction [None]
  - Off label use [None]

NARRATIVE: CASE EVENT DATE: 20140730
